FAERS Safety Report 10276761 (Version 1)
Quarter: 2014Q3

REPORT INFORMATION
  Report Type: Spontaneous
  Country: IL (occurrence: IL)
  Receive Date: 20140703
  Receipt Date: 20140703
  Transmission Date: 20150326
  Serious: Yes (Other)
  Sender: FDA-Public Use
  Company Number: PHHY2014IL082115

PATIENT
  Age: 30 Year
  Sex: Male

DRUGS (3)
  1. ANTIPSYCHOTICS [Concomitant]
     Active Substance: UNSPECIFIED INGREDIENT
     Indication: SCHIZOPHRENIA, PARANOID TYPE
  2. LEPONEX [Suspect]
     Active Substance: CLOZAPINE
     Indication: SCHIZOPHRENIA, PARANOID TYPE
     Dosage: 500 MG\DAY
  3. LEPONEX [Suspect]
     Active Substance: CLOZAPINE
     Dosage: 300 MG/DAY

REACTIONS (1)
  - Retrograde ejaculation [Unknown]
